FAERS Safety Report 10251995 (Version 2)
Quarter: 2014Q4

REPORT INFORMATION
  Report Type: Spontaneous
  Country: JP (occurrence: JP)
  Receive Date: 20140623
  Receipt Date: 20141031
  Transmission Date: 20150528
  Serious: Yes (Congenital Anomaly, Other)
  Sender: FDA-Public Use
  Company Number: JP-009507513-1406JPN010753

PATIENT
  Age: 4 Day
  Sex: Female
  Weight: 2.4 kg

DRUGS (3)
  1. MAGNESIUM (UNSPECIFIED) [Concomitant]
     Active Substance: MAGNESIUM
     Route: 064
  2. TRYPTANOL [Suspect]
     Active Substance: AMITRIPTYLINE
     Dosage: 10 MG, BID
     Route: 064
     Dates: start: 20140123, end: 20140609
  3. SODIUM PICOSULFATE [Concomitant]
     Active Substance: SODIUM PICOSULFATE
     Route: 064

REACTIONS (3)
  - Gastrointestinal hypomotility [Recovered/Resolved]
  - Drug withdrawal syndrome neonatal [Unknown]
  - Vomiting [Recovered/Resolved]

NARRATIVE: CASE EVENT DATE: 20140609
